FAERS Safety Report 9317828 (Version 1)
Quarter: 2013Q2

REPORT INFORMATION
  Report Type: Spontaneous
  Country: US (occurrence: US)
  Receive Date: 20130530
  Receipt Date: 20130530
  Transmission Date: 20140414
  Serious: No
  Sender: FDA-Public Use
  Company Number: US-NOVEN-12US005033

PATIENT
  Sex: Male
  Weight: 35.83 kg

DRUGS (1)
  1. DAYTRANA [Suspect]
     Indication: ATTENTION DEFICIT/HYPERACTIVITY DISORDER
     Dosage: 20 MG, UNK
     Route: 062
     Dates: start: 2006, end: 201204

REACTIONS (4)
  - Application site discolouration [Not Recovered/Not Resolved]
  - Application site irritation [Recovered/Resolved]
  - Decreased appetite [Recovered/Resolved]
  - Product quality issue [Recovered/Resolved]
